FAERS Safety Report 13687747 (Version 1)
Quarter: 2017Q2

REPORT INFORMATION
  Report Type: Spontaneous
  Country: CN (occurrence: CN)
  Receive Date: 20170625
  Receipt Date: 20170625
  Transmission Date: 20170830
  Serious: Yes (Hospitalization)
  Sender: FDA-Public Use
  Company Number: CN-MYLANLABS-2017M1037865

PATIENT

DRUGS (2)
  1. CALCITONIN SALMON. [Suspect]
     Active Substance: CALCITONIN SALMON
     Indication: REHABILITATION THERAPY
  2. CALCITONIN SALMON. [Suspect]
     Active Substance: CALCITONIN SALMON
     Indication: HUMERUS FRACTURE
     Dosage: 50 IU, QD
     Route: 030
     Dates: start: 20170425, end: 20170425

REACTIONS (6)
  - Cyanosis [Unknown]
  - Asthenia [Unknown]
  - Chills [Recovering/Resolving]
  - Diarrhoea [Unknown]
  - Pallor [Unknown]
  - Dyspnoea [Unknown]

NARRATIVE: CASE EVENT DATE: 20170425
